FAERS Safety Report 12463902 (Version 1)
Quarter: 2016Q2

REPORT INFORMATION
  Report Type: Spontaneous
  Country: GB (occurrence: GB)
  Receive Date: 20160614
  Receipt Date: 20160614
  Transmission Date: 20160815
  Serious: Yes (Life-Threatening)
  Sender: FDA-Public Use
  Company Number: GB-TEVA-666223ACC

PATIENT
  Age: 57 Year
  Sex: Male
  Weight: 101.6 kg

DRUGS (4)
  1. MEMANTINE. [Concomitant]
     Active Substance: MEMANTINE
  2. BUSCOPAN [Concomitant]
     Active Substance: BUTYLSCOPOLAMINE BROMIDE
  3. SERTRALINE [Concomitant]
     Active Substance: SERTRALINE HYDROCHLORIDE
  4. HALOPERIDOL. [Suspect]
     Active Substance: HALOPERIDOL
     Indication: DELIRIUM

REACTIONS (5)
  - Hyperhidrosis [Recovered/Resolved with Sequelae]
  - Body temperature increased [Recovered/Resolved with Sequelae]
  - Hypertension [Recovering/Resolving]
  - Loss of consciousness [Recovered/Resolved with Sequelae]
  - Heart rate abnormal [Recovered/Resolved with Sequelae]
